FAERS Safety Report 15801055 (Version 1)
Quarter: 2019Q1

REPORT INFORMATION
  Report Type: Report from Study
  Country: None (occurrence: AR)
  Receive Date: 20190109
  Receipt Date: 20190109
  Transmission Date: 20190417
  Serious: Yes (Other)
  Sender: FDA-Public Use
  Company Number: AR-ABBVIE-19K-007-2617522-00

PATIENT
  Age: 68 Year
  Sex: Male

DRUGS (1)
  1. HUMIRA [Suspect]
     Active Substance: ADALIMUMAB
     Indication: PRODUCT USED FOR UNKNOWN INDICATION
     Route: 058
     Dates: start: 20130822

REACTIONS (4)
  - Tibia fracture [Unknown]
  - Fibula fracture [Unknown]
  - Loss of consciousness [Not Recovered/Not Resolved]
  - Humerus fracture [Unknown]

NARRATIVE: CASE EVENT DATE: 201811
